FAERS Safety Report 25146106 (Version 1)
Quarter: 2025Q2

REPORT INFORMATION
  Report Type: Spontaneous
  Country: US (occurrence: None)
  Receive Date: 20250331
  Receipt Date: 20250331
  Transmission Date: 20250717
  Serious: No
  Sender: FDA-CTU
  Company Number: None

PATIENT
  Age: 79 Year
  Sex: Male

DRUGS (1)
  1. EXJADE [Suspect]
     Active Substance: DEFERASIROX
     Indication: Blood test abnormal
     Dosage: 1000MG DAILY ORAL ?
     Route: 048
     Dates: start: 20250306, end: 20250331

REACTIONS (1)
  - Lung disorder [None]

NARRATIVE: CASE EVENT DATE: 20250331
